FAERS Safety Report 5360072-7 (Version None)
Quarter: 2007Q2

REPORT INFORMATION
  Report Type: 
  Country: None (occurrence: None)
  Receive Date: 20070618
  Receipt Date: 20060629
  Transmission Date: 20071010
  Serious: No
  Sender: FDA-Public Use
  Company Number: US-ASTRAZENECA-2006UW13691

PATIENT
  Age: 78 Year
  Sex: Female
  Weight: 44 kg

DRUGS (3)
  1. FASLODEX [Suspect]
     Indication: BREAST CANCER
     Dosage: 250 MG 1 X 5.0 ML SYRINGE
  2. RADIATION THERAPY [Concomitant]
  3. OMNICEF [Concomitant]

REACTIONS (11)
  - BODY TEMPERATURE INCREASED [None]
  - CHILLS [None]
  - CONSTIPATION [None]
  - DECREASED APPETITE [None]
  - FEELING ABNORMAL [None]
  - FEELING HOT [None]
  - HEADACHE [None]
  - HOT FLUSH [None]
  - NAUSEA [None]
  - PHARYNGOLARYNGEAL PAIN [None]
  - POLLAKIURIA [None]
